FAERS Safety Report 8885757 (Version 3)
Quarter: 2013Q2

REPORT INFORMATION
  Report Type: Spontaneous
  Country: US (occurrence: US)
  Receive Date: 20121101
  Receipt Date: 20130409
  Transmission Date: 20140414
  Serious: Yes (Other)
  Sender: FDA-Public Use
  Company Number: US-AMGEN-USASP2012069218

PATIENT
  Age: 66 Year
  Sex: Female

DRUGS (9)
  1. PROLIA [Suspect]
     Indication: OSTEOPOROSIS
     Dosage: UNK
     Dates: start: 2011
  2. PROLIA [Suspect]
  3. NEXIUM                             /01479302/ [Concomitant]
  4. RANITIDINE [Concomitant]
  5. OPHTHALMOLOGICAL AND OTOLOGICAL PREPARATIONS [Concomitant]
  6. CALCIUM PLUS VITAMIN D3 [Concomitant]
     Dosage: UNK UNK, BID
  7. VITAMIN E                          /00110501/ [Concomitant]
  8. VITAMIN C                          /00008001/ [Concomitant]
  9. VITAMINS NOS [Concomitant]

REACTIONS (8)
  - Lumbar vertebral fracture [Recovering/Resolving]
  - Hypokinesia [Not Recovered/Not Resolved]
  - Scoliosis [Not Recovered/Not Resolved]
  - Musculoskeletal discomfort [Unknown]
  - Injury [Unknown]
  - Fall [Unknown]
  - Arthropathy [Unknown]
  - Back pain [Recovering/Resolving]
